FAERS Safety Report 5273594-4 (Version None)
Quarter: 2007Q1

REPORT INFORMATION
  Report Type: 
  Country: None (occurrence: None)
  Receive Date: 20070320
  Receipt Date: 20070302
  Transmission Date: 20070707
  Serious: Yes (Hospitalization)
  Sender: FDA-Public Use
  Company Number: 238240

PATIENT
  Age: 67 Year
  Sex: Male
  Weight: 54.9 kg

DRUGS (3)
  1. AVASTIN [Suspect]
     Indication: COLORECTAL CANCER METASTATIC
     Dosage: 404 MG, Q3W, INTRAVENOUS
     Route: 042
     Dates: start: 20060802
  2. CAPECITABINE(CAPECITABINE) [Suspect]
     Indication: COLORECTAL CANCER METASTATIC
     Dosage: 2 UNK, QD, ORAL
     Route: 048
     Dates: start: 20060216, end: 20070301
  3. OXALIPLATIN [Suspect]
     Indication: COLORECTAL CANCER METASTATIC
     Dosage: 199 MG, Q3W, INTRAVENOUS
     Route: 042
     Dates: start: 20060802

REACTIONS (2)
  - ANAEMIA [None]
  - HEART RATE INCREASED [None]
